FAERS Safety Report 23877021 (Version 1)
Quarter: 2024Q2

REPORT INFORMATION
  Report Type: Spontaneous
  Country: FR (occurrence: FR)
  Receive Date: 20240521
  Receipt Date: 20240521
  Transmission Date: 20240717
  Serious: Yes (Other)
  Sender: FDA-Public Use
  Company Number: FR-AFSSAPS-RN2024000522

PATIENT
  Age: 40 Year
  Sex: Female

DRUGS (1)
  1. AZITHROMYCIN [Suspect]
     Active Substance: AZITHROMYCIN
     Indication: Tonsillitis
     Dosage: 2 DOSAGE FORM, ONCE A DAY (2 CP / JOUR)
     Route: 048
     Dates: start: 20240327, end: 20240328

REACTIONS (2)
  - Eyelid oedema [Recovered/Resolved]
  - Urticaria [Recovered/Resolved]

NARRATIVE: CASE EVENT DATE: 20240328
